FAERS Safety Report 5121147-0 (Version None)
Quarter: 2006Q4

REPORT INFORMATION
  Report Type: 
  Country: None (occurrence: None)
  Receive Date: 20061002
  Receipt Date: 20060922
  Transmission Date: 20070319
  Serious: Yes (Death, Life-Threatening, Hospitalization)
  Sender: FDA-Public Use
  Company Number: HQWYE200013JUN06

PATIENT
  Age: 64 Year
  Sex: Male

DRUGS (6)
  1. MYLOTARG [Suspect]
     Indication: ACUTE MYELOID LEUKAEMIA RECURRENT
     Dosage: 9 MG/M^2 1X PER 1 DAY, INTRAVENOUS DRIP
     Route: 041
     Dates: start: 20060412, end: 20060412
  2. MYLOTARG [Suspect]
     Indication: ACUTE MYELOID LEUKAEMIA RECURRENT
     Dosage: 9 MG/M^2 1X PER 1 DAY, INTRAVENOUS DRIP
     Route: 041
     Dates: start: 20060426, end: 20060426
  3. NEUQUINON (UBIDECARENONE) [Concomitant]
  4. METHYCOBAL (MECOBALAMIN) [Concomitant]
  5. SUCRALFATE [Concomitant]
  6. LANSOPRAZOLE [Concomitant]

REACTIONS (22)
  - ACUTE MYELOID LEUKAEMIA [None]
  - BLOOD CREATININE INCREASED [None]
  - BLOOD UREA INCREASED [None]
  - BONE MARROW FAILURE [None]
  - CANCER PAIN [None]
  - CARDIAC FAILURE CONGESTIVE [None]
  - CHILLS [None]
  - CONSTIPATION [None]
  - DISSEMINATED INTRAVASCULAR COAGULATION [None]
  - DRUG INEFFECTIVE [None]
  - FEBRILE NEUTROPENIA [None]
  - HISTIOCYTOSIS HAEMATOPHAGIC [None]
  - HYPERTENSION [None]
  - HYPOKALAEMIA [None]
  - INFUSION RELATED REACTION [None]
  - LIVER DISORDER [None]
  - MALIGNANT NEOPLASM PROGRESSION [None]
  - NAUSEA [None]
  - PANCYTOPENIA [None]
  - PULMONARY HAEMORRHAGE [None]
  - SERUM FERRITIN INCREASED [None]
  - TUMOUR ASSOCIATED FEVER [None]
